FAERS Safety Report 10974781 (Version 1)
Quarter: 2015Q2

REPORT INFORMATION
  Report Type: Spontaneous
  Country: JP (occurrence: JP)
  Receive Date: 20150401
  Receipt Date: 20150401
  Transmission Date: 20150821
  Serious: Yes (Other)
  Sender: FDA-Public Use
  Company Number: GXJP2015JP000653

PATIENT
  Age: 42 Year
  Sex: Female
  Weight: 43.8 kg

DRUGS (11)
  1. RIFABUTIN. [Suspect]
     Active Substance: RIFABUTIN
     Indication: TUBERCULOSIS
     Dosage: 300 MG, QD
     Route: 048
     Dates: start: 201201
  2. RED CELLS CONCENTRATES [Concomitant]
     Indication: NORMOCHROMIC NORMOCYTIC ANAEMIA
     Dosage: 2 U, QW
     Route: 065
  3. CLARITHROMYCIN. [Suspect]
     Active Substance: CLARITHROMYCIN
     Indication: TUBERCULOSIS
     Dosage: 800 MG, QD
     Route: 048
     Dates: start: 201201
  4. RIFAMPICIN [Suspect]
     Active Substance: RIFAMPIN
     Indication: TUBERCULOSIS
     Route: 065
     Dates: start: 201204
  5. LEVOFLOXACIN. [Concomitant]
     Active Substance: LEVOFLOXACIN
     Indication: TUBERCULOSIS
     Dosage: 500 MG, QD
     Route: 048
     Dates: start: 201202
  6. STREPTOMYCIN [Concomitant]
     Active Substance: STREPTOMYCIN\STREPTOMYCIN SULFATE
     Indication: TUBERCULOSIS
     Dosage: 750 MG, TIW
     Route: 048
  7. LEVOFLOXACIN. [Concomitant]
     Active Substance: LEVOFLOXACIN
     Route: 065
  8. RIFAMPICIN [Suspect]
     Active Substance: RIFAMPIN
     Route: 065
  9. BETAMETHASONE [Concomitant]
     Active Substance: BETAMETHASONE
     Indication: PYREXIA
     Dosage: 2 MG, QD
     Route: 048
  10. KANAMYCIN [Concomitant]
     Active Substance: KANAMYCIN\KANAMYCIN A SULFATE
     Indication: TUBERCULOSIS
     Dosage: 750 MG, TIW
     Route: 065
  11. ETHAMBUTOL [Suspect]
     Active Substance: ETHAMBUTOL HYDROCHLORIDE
     Indication: TUBERCULOSIS
     Dosage: 500 MG, QD
     Route: 048
     Dates: start: 201201

REACTIONS (2)
  - Pyrexia [Recovering/Resolving]
  - Drug eruption [Unknown]
